FAERS Safety Report 18947797 (Version 2)
Quarter: 2021Q2

REPORT INFORMATION
  Report Type: Spontaneous
  Country: US (occurrence: US)
  Receive Date: 20210227
  Receipt Date: 20210604
  Transmission Date: 20210717
  Serious: Yes (Hospitalization, Other)
  Sender: FDA-Public Use
  Company Number: US-BRISTOL-MYERS SQUIBB COMPANY-BMS-2021-016745

PATIENT
  Age: 76 Year
  Sex: Female

DRUGS (2)
  1. OPDIVO [Suspect]
     Active Substance: NIVOLUMAB
     Dosage: UNK, Q4WK (CURRENTLY)
     Route: 065
  2. OPDIVO [Suspect]
     Active Substance: NIVOLUMAB
     Indication: SMALL CELL LUNG CANCER
     Dosage: UNK, Q2WK (INITIALLY)
     Route: 065

REACTIONS (5)
  - Memory impairment [Unknown]
  - Balance disorder [Unknown]
  - Hip fracture [Unknown]
  - Intentional product use issue [Unknown]
  - Fall [Unknown]
